FAERS Safety Report 17985351 (Version 1)
Quarter: 2020Q3

REPORT INFORMATION
  Report Type: Report from Study
  Country: US (occurrence: US)
  Receive Date: 20200706
  Receipt Date: 20200706
  Transmission Date: 20201103
  Serious: Yes (Other)
  Sender: FDA-Public Use
  Company Number: US-JNJFOC-20200633408

PATIENT
  Sex: Female

DRUGS (17)
  1. SPRAVATO [Suspect]
     Active Substance: ESKETAMINE
     Dates: start: 20200102, end: 20200102
  2. SPRAVATO [Suspect]
     Active Substance: ESKETAMINE
     Dates: start: 20191205, end: 20191205
  3. SPRAVATO [Suspect]
     Active Substance: ESKETAMINE
     Dates: start: 20200130, end: 20200130
  4. SPRAVATO [Suspect]
     Active Substance: ESKETAMINE
     Dates: start: 20200414, end: 20200414
  5. SPRAVATO [Suspect]
     Active Substance: ESKETAMINE
     Dates: start: 20191226, end: 20191226
  6. SPRAVATO [Suspect]
     Active Substance: ESKETAMINE
     Dates: start: 20191114, end: 20191114
  7. SPRAVATO [Suspect]
     Active Substance: ESKETAMINE
     Dates: start: 20191120, end: 20191120
  8. SPRAVATO [Suspect]
     Active Substance: ESKETAMINE
     Indication: DEPRESSION
  9. SPRAVATO [Suspect]
     Active Substance: ESKETAMINE
     Dates: start: 20191121, end: 20191121
  10. SPRAVATO [Suspect]
     Active Substance: ESKETAMINE
     Dates: start: 20191126, end: 20191126
  11. SPRAVATO [Suspect]
     Active Substance: ESKETAMINE
     Dates: start: 20191127, end: 20191127
  12. SPRAVATO [Suspect]
     Active Substance: ESKETAMINE
     Dates: start: 20191204, end: 20191204
  13. SPRAVATO [Suspect]
     Active Substance: ESKETAMINE
     Dates: start: 20200207, end: 20200207
  14. SPRAVATO [Suspect]
     Active Substance: ESKETAMINE
     Dates: start: 20191218, end: 20191218
  15. SPRAVATO [Suspect]
     Active Substance: ESKETAMINE
     Dates: start: 20191211, end: 20191211
  16. SPRAVATO [Suspect]
     Active Substance: ESKETAMINE
     Dates: start: 20200115, end: 20200115
  17. SPRAVATO [Suspect]
     Active Substance: ESKETAMINE
     Dates: start: 20200310, end: 20200310

REACTIONS (1)
  - Substance abuse [Unknown]
